FAERS Safety Report 9067659 (Version 1)
Quarter: 2013Q1

REPORT INFORMATION
  Report Type: Spontaneous
  Country: US (occurrence: US)
  Receive Date: 20130206
  Receipt Date: 20130206
  Transmission Date: 20140127
  Serious: No
  Sender: FDA-Public Use
  Company Number: US-ASTRAZENECA-2013SE07138

PATIENT
  Age: 64 Year
  Sex: Female
  Weight: 63.5 kg

DRUGS (4)
  1. CRESTOR [Suspect]
     Indication: BLOOD CHOLESTEROL INCREASED
     Route: 048
     Dates: start: 2007
  2. CRESTOR [Suspect]
     Indication: BLOOD TRIGLYCERIDES ABNORMAL
     Route: 048
     Dates: start: 2007
  3. LORATIDINE [Concomitant]
     Indication: MULTIPLE ALLERGIES
  4. GREEN COFFEE BEAN EXTRACT [Concomitant]

REACTIONS (2)
  - Gastrooesophageal reflux disease [Unknown]
  - Hyperchlorhydria [Unknown]
